FAERS Safety Report 12519292 (Version 1)
Quarter: 2016Q2

REPORT INFORMATION
  Report Type: Spontaneous
  Country: FR (occurrence: FR)
  Receive Date: 20160630
  Receipt Date: 20160630
  Transmission Date: 20160815
  Serious: Yes (Hospitalization)
  Sender: FDA-Public Use
  Company Number: FR-PFIZER INC-2016317113

PATIENT
  Age: 71 Year
  Sex: Male

DRUGS (14)
  1. DEROXAT [Suspect]
     Active Substance: PAROXETINE HYDROCHLORIDE
     Indication: DEPRESSION
     Dosage: UNK
     Route: 048
     Dates: end: 201605
  2. PROGRAF [Suspect]
     Active Substance: TACROLIMUS\TACROLIMUS ANHYDROUS
     Dosage: 2 MG, 2X/DAY
     Route: 048
  3. SOLUPRED /00016201/ [Suspect]
     Active Substance: PREDNISOLONE
     Indication: RENAL TRANSPLANT
     Dosage: 60 MG, DAILY
     Route: 048
     Dates: start: 2005
  4. NOVONORM [Suspect]
     Active Substance: REPAGLINIDE
     Indication: DIABETES MELLITUS
     Dosage: UNK
     Route: 048
     Dates: end: 20160518
  5. MOPRAL /00661201/ [Suspect]
     Active Substance: OMEPRAZOLE SODIUM
     Indication: OESOPHAGITIS
     Dosage: 20 MG, 1X/DAY
     Route: 048
     Dates: end: 20160518
  6. CELLCEPT [Suspect]
     Active Substance: MYCOPHENOLATE MOFETIL\MYCOPHENOLATE MOFETIL HYDROCHLORIDE
     Indication: RENAL TRANSPLANT
     Dosage: 1 G, 2X/DAY
     Route: 048
     Dates: start: 2005
  7. LANTUS [Suspect]
     Active Substance: INSULIN GLARGINE
     Indication: DIABETES MELLITUS
     Dosage: UNK
     Route: 058
     Dates: end: 20160518
  8. ORACILLINE /00001801/ [Suspect]
     Active Substance: PENICILLIN V
     Indication: ANTIBIOTIC PROPHYLAXIS
     Dosage: 1 MILLION IU, 2X/DAY
     Route: 048
     Dates: start: 2014, end: 20160518
  9. TARDYFERON [Suspect]
     Active Substance: FERROUS SULFATE\FOLIC ACID
     Indication: IRON DEFICIENCY
     Dosage: UNK
     Route: 048
     Dates: end: 20160518
  10. AMLOR [Suspect]
     Active Substance: AMLODIPINE BESYLATE
     Indication: HYPERTENSION
     Dosage: 5 MG, 1X/DAY
     Route: 048
  11. CELLCEPT [Suspect]
     Active Substance: MYCOPHENOLATE MOFETIL\MYCOPHENOLATE MOFETIL HYDROCHLORIDE
     Dosage: 500 MG, 2X/DAY
     Route: 048
     Dates: end: 20160613
  12. VASTEN /00880402/ [Suspect]
     Active Substance: PRAVASTATIN SODIUM
     Indication: DYSLIPIDAEMIA
     Dosage: 20 MG, 1X/DAY
     Route: 048
     Dates: start: 2005, end: 20160518
  13. PROGRAF [Suspect]
     Active Substance: TACROLIMUS\TACROLIMUS ANHYDROUS
     Indication: RENAL TRANSPLANT
     Dosage: 3 MG, 2X/DAY
     Route: 048
     Dates: start: 2005
  14. SOLUPRED /00016201/ [Suspect]
     Active Substance: PREDNISOLONE
     Dosage: 5 MG, 1X/DAY
     Route: 048
     Dates: end: 20160527

REACTIONS (4)
  - Pulmonary fibrosis [Not Recovered/Not Resolved]
  - Cardiac failure acute [Unknown]
  - Interstitial lung disease [Not Recovered/Not Resolved]
  - Dyspnoea [Not Recovered/Not Resolved]

NARRATIVE: CASE EVENT DATE: 201605
